FAERS Safety Report 20655883 (Version 1)
Quarter: 2022Q1

REPORT INFORMATION
  Report Type: Spontaneous
  Country: FR (occurrence: FR)
  Receive Date: 20220330
  Receipt Date: 20220330
  Transmission Date: 20220423
  Serious: Yes (Disabling)
  Sender: FDA-Public Use
  Company Number: None

PATIENT
  Age: 60 Year
  Sex: Female
  Weight: 53 kg

DRUGS (2)
  1. LEVOFLOXACIN [Suspect]
     Active Substance: LEVOFLOXACIN
     Indication: Pneumonia
     Dosage: 2 DOSAGE FORMS DAILY; 1 TABLET TWICE A DAY FOR 10 DAYS,LEVOFLOXACIN TEVA 500 MG, SCORED FILM-COATED
     Route: 048
     Dates: start: 20220207, end: 20220211
  2. PREDNISONE [Suspect]
     Active Substance: PREDNISONE
     Indication: Pneumonia
     Dosage: 2.5 DOSAGE FORMS DAILY; 2.5 TABLETS IN THE MORNING FOR 4 DAYS,,PREDNISONE BIOGARAN 20 MG, SCORED TAB
     Route: 048
     Dates: start: 20220208, end: 20220210

REACTIONS (6)
  - Enthesopathy [Not Recovered/Not Resolved]
  - Tendon disorder [Not Recovered/Not Resolved]
  - Nightmare [Recovered/Resolved]
  - Headache [Recovered/Resolved]
  - Myalgia [Not Recovered/Not Resolved]
  - Paraesthesia [Not Recovered/Not Resolved]

NARRATIVE: CASE EVENT DATE: 20220201
